FAERS Safety Report 25855904 (Version 3)
Quarter: 2025Q4

REPORT INFORMATION
  Report Type: Spontaneous
  Country: US (occurrence: US)
  Receive Date: 20250928
  Receipt Date: 20251031
  Transmission Date: 20260117
  Serious: No
  Sender: ELI LILLY AND COMPANY
  Company Number: US-ELI_LILLY_AND_COMPANY-US202509026027

PATIENT
  Age: 47 Year
  Sex: Female

DRUGS (2)
  1. VERZENIO [Suspect]
     Active Substance: ABEMACICLIB
     Indication: Breast cancer female
     Dosage: 100 MG, BID
     Route: 048
     Dates: start: 20250903
  2. VERZENIO [Suspect]
     Active Substance: ABEMACICLIB
     Dosage: 100 MG, BID
     Route: 048

REACTIONS (6)
  - Abdominal pain upper [Unknown]
  - Abdominal pain [Unknown]
  - Diarrhoea [Not Recovered/Not Resolved]
  - Nausea [Unknown]
  - Vomiting [Unknown]
  - Fatigue [Not Recovered/Not Resolved]
